FAERS Safety Report 11945312 (Version 1)
Quarter: 2016Q1

REPORT INFORMATION
  Report Type: Spontaneous
  Country: ID (occurrence: ID)
  Receive Date: 20160125
  Receipt Date: 20160125
  Transmission Date: 20160526
  Serious: Yes (Death, Life-Threatening, Hospitalization, Other)
  Sender: FDA-Public Use
  Company Number: ID-BAYER-2015-459972

PATIENT
  Age: 40 Year
  Sex: Male

DRUGS (1)
  1. NEXAVAR [Suspect]
     Active Substance: SORAFENIB
     Indication: HEPATOCELLULAR CARCINOMA
     Dosage: 200 MG, BID
     Route: 048
     Dates: start: 20151002, end: 201512

REACTIONS (8)
  - Feeling hot [None]
  - Hypertension [Not Recovered/Not Resolved]
  - Pain [None]
  - Hepatomegaly [Fatal]
  - Oropharyngeal pain [None]
  - Condition aggravated [None]
  - Palmar-plantar erythrodysaesthesia syndrome [Recovering/Resolving]
  - Pyrexia [None]

NARRATIVE: CASE EVENT DATE: 20151009
